FAERS Safety Report 4788909-0 (Version None)
Quarter: 2005Q4

REPORT INFORMATION
  Report Type: 
  Country: None (occurrence: None)
  Receive Date: 20051004
  Receipt Date: 20050922
  Transmission Date: 20060501
  Serious: Yes (Hospitalization)
  Sender: FDA-Public Use
  Company Number: 216121

PATIENT
  Age: 56 Year
  Sex: Male
  Weight: 53 kg

DRUGS (10)
  1. RITUXAN [Suspect]
     Indication: NON-HODGKIN'S LYMPHOMA
     Dosage: SEE IMAGE
     Route: 042
     Dates: start: 20040224, end: 20040518
  2. RITUXAN [Suspect]
     Indication: NON-HODGKIN'S LYMPHOMA
     Dosage: SEE IMAGE
     Route: 042
     Dates: start: 20040615, end: 20040725
  3. RITUXAN [Suspect]
     Indication: NON-HODGKIN'S LYMPHOMA
     Dosage: SEE IMAGE
     Route: 042
     Dates: end: 20041012
  4. CYCLOPHOSPHAMIDE [Concomitant]
  5. ONCOVIN [Concomitant]
  6. ADRIAMYCIN PFS [Concomitant]
  7. PREDONINE (PREDNISOLONE, PREDNISOLONE ACETATE, PREDNISOLONE SODIUM SUC [Concomitant]
  8. LEUSTATIN [Concomitant]
  9. NOVANTRONE [Concomitant]
  10. NEUTROGIN (LENOGRASTIM) [Concomitant]

REACTIONS (7)
  - ADENOVIRAL HAEMORRHAGIC CYSTITIS [None]
  - HAEMATOCRIT DECREASED [None]
  - HAEMOGLOBIN DECREASED [None]
  - HYPOGAMMAGLOBULINAEMIA [None]
  - PLATELET COUNT DECREASED [None]
  - STEM CELL TRANSPLANT [None]
  - WHITE BLOOD CELL COUNT DECREASED [None]
